FAERS Safety Report 10221355 (Version 2)
Quarter: 2014Q2

REPORT INFORMATION
  Report Type: Spontaneous
  Country: CH (occurrence: CH)
  Receive Date: 20140606
  Receipt Date: 20140618
  Transmission Date: 20141212
  Serious: Yes (Other)
  Sender: FDA-Public Use
  Company Number: CH-TEVA-485573ISR

PATIENT
  Age: 69 Year
  Sex: Female

DRUGS (2)
  1. COPAXONE [Suspect]
     Indication: MULTIPLE SCLEROSIS
     Route: 058
     Dates: start: 20121027
  2. VI-DE 3 DROPS [Concomitant]

REACTIONS (3)
  - Hypogammaglobulinaemia [Unknown]
  - Alpha 1 globulin increased [Unknown]
  - Alpha 2 globulin increased [Unknown]
